FAERS Safety Report 4815943-4 (Version None)
Quarter: 2005Q4

REPORT INFORMATION
  Report Type: 
  Country: None (occurrence: None)
  Receive Date: 20051031
  Receipt Date: 20051021
  Transmission Date: 20060501
  Serious: Yes (Other)
  Sender: FDA-Public Use
  Company Number: NL-ABBOTT-05P-114-0314792-00

PATIENT
  Age: 35 Year
  Sex: Female
  Weight: 72 kg

DRUGS (6)
  1. VALPROIC ACID [Suspect]
     Indication: EPILEPSY
     Dosage: NOT REPORTED
  2. PHENOBARBITAL TAB [Suspect]
     Indication: EPILEPSY
     Dosage: NOT REPORTED
  3. ETHOSUXIMIDE [Suspect]
     Indication: EPILEPSY
     Dosage: NOT REPORTED
  4. CARBAMAZEPINE [Suspect]
     Indication: EPILEPSY
     Dosage: NOT REPORTED
  5. OXCARBAZEPINE [Suspect]
     Indication: EPILEPSY
     Dosage: NOT REPORTED
  6. LAMOTRIGINE [Suspect]
     Indication: EPILEPSY
     Dosage: NOT REPORTED

REACTIONS (6)
  - DRUG EXPOSURE DURING PREGNANCY [None]
  - FALL [None]
  - OSTEOPENIA [None]
  - PELVIC FRACTURE [None]
  - PREGNANCY [None]
  - THORACIC VERTEBRAL FRACTURE [None]
